FAERS Safety Report 8257228 (Version 4)
Quarter: 2013Q2

REPORT INFORMATION
  Report Type: Spontaneous
  Country: US (occurrence: US)
  Receive Date: 20111121
  Receipt Date: 20130531
  Transmission Date: 20140414
  Serious: Yes (Other)
  Sender: FDA-Public Use
  Company Number: US-ASTRAZENECA-2011SE68757

PATIENT
  Age: 60 Year
  Sex: Female

DRUGS (2)
  1. TOPROL XL [Suspect]
     Route: 048
  2. CRESTOR [Suspect]
     Route: 048

REACTIONS (5)
  - Postoperative thrombosis [Unknown]
  - Back disorder [Unknown]
  - Nasopharyngitis [Unknown]
  - Wound [Unknown]
  - Panic attack [Unknown]
